FAERS Safety Report 11733026 (Version 1)
Quarter: 2015Q4

REPORT INFORMATION
  Report Type: Spontaneous
  Country: US (occurrence: US)
  Receive Date: 20151110
  Receipt Date: 20151110
  Transmission Date: 20160304
  Serious: No
  Sender: FDA-Public Use
  Company Number: US-ELI_LILLY_AND_COMPANY-US201203008026

PATIENT
  Sex: Female

DRUGS (3)
  1. FORTEO [Suspect]
     Active Substance: TERIPARATIDE
     Dosage: 20 UG, QOD
     Dates: start: 201202
  2. FORTEO [Suspect]
     Active Substance: TERIPARATIDE
     Dosage: 20 UG, QOD
  3. FORTEO [Suspect]
     Active Substance: TERIPARATIDE
     Indication: OSTEOPOROSIS
     Dosage: 20 UG, QD
     Dates: start: 201202

REACTIONS (11)
  - Heart rate irregular [Recovered/Resolved]
  - Decreased appetite [Unknown]
  - Malaise [Not Recovered/Not Resolved]
  - Dizziness [Recovered/Resolved]
  - Diarrhoea [Unknown]
  - Heart rate increased [Recovered/Resolved]
  - Nausea [Unknown]
  - Pain [Recovered/Resolved]
  - Arthralgia [Recovered/Resolved]
  - Back pain [Unknown]
  - Influenza like illness [Not Recovered/Not Resolved]
